FAERS Safety Report 7271885-9 (Version None)
Quarter: 2011Q1

REPORT INFORMATION
  Report Type: 
  Country: None (occurrence: None)
  Receive Date: 20110126
  Receipt Date: 20110111
  Transmission Date: 20110831
  Serious: Yes (Hospitalization)
  Sender: FDA-Public Use
  Company Number: 2010-4259

PATIENT
  Age: 72 Year
  Sex: Female

DRUGS (5)
  1. CIPRAMIL (CITALOPRAM HYDROBROMIDE) [Concomitant]
  2. MADOPAR LT (MADOPAR) [Concomitant]
  3. SEROQUEL [Concomitant]
  4. LEVOCOMP RET. 200 (SINEMET) [Concomitant]
  5. APO-GO AMPOULES (APO-GO) (APOMORPHINE HYDROCHLORIDE) (APOMORPHINE HYDR [Suspect]
     Indication: PARKINSON'S DISEASE
     Dosage: 64 MG (4 MG, FROM 6AM TO 10PM)
     Dates: start: 20090103, end: 20101122

REACTIONS (5)
  - DRUG INEFFECTIVE [None]
  - NODULE [None]
  - MALABSORPTION [None]
  - HYPERKINESIA [None]
  - DYSKINESIA [None]
